FAERS Safety Report 20072750 (Version 1)
Quarter: 2021Q4

REPORT INFORMATION
  Report Type: Spontaneous
  Country: US (occurrence: US)
  Receive Date: 20211116
  Receipt Date: 20211116
  Transmission Date: 20220303
  Serious: Yes (Hospitalization)
  Sender: FDA-Public Use
  Company Number: US-BRISTOL-MYERS SQUIBB COMPANY-BMS-2021-118383

PATIENT
  Age: 53 Year
  Sex: Male
  Weight: 69.388 kg

DRUGS (5)
  1. BELATACEPT [Suspect]
     Active Substance: BELATACEPT
     Indication: Renal transplant
     Dosage: 750 MILLIGRAM
     Route: 042
     Dates: start: 20210830
  2. BELATACEPT [Suspect]
     Active Substance: BELATACEPT
     Dosage: 750 MILLIGRAM
     Route: 042
     Dates: start: 20210903
  3. BELATACEPT [Suspect]
     Active Substance: BELATACEPT
     Dosage: 750 MILLIGRAM
     Route: 042
     Dates: start: 20210913
  4. BELATACEPT [Suspect]
     Active Substance: BELATACEPT
     Dosage: 750 MILLIGRAM
     Route: 042
     Dates: start: 20210927
  5. BELATACEPT [Suspect]
     Active Substance: BELATACEPT
     Dosage: 750 MILLIGRAM
     Route: 042
     Dates: start: 20211022

REACTIONS (2)
  - COVID-19 [Unknown]
  - Renal pain [Unknown]

NARRATIVE: CASE EVENT DATE: 20211104
